FAERS Safety Report 18898797 (Version 1)
Quarter: 2021Q1

REPORT INFORMATION
  Report Type: Spontaneous
  Country: US (occurrence: US)
  Receive Date: 20210213
  Receipt Date: 20210213
  Transmission Date: 20210420
  Serious: Yes (Other)
  Sender: FDA-Public Use
  Company Number: None

PATIENT
  Age: 53 Year
  Sex: Female
  Weight: 50.4 kg

DRUGS (1)
  1. MANUKA HONEY ALLERCLEANSE [Suspect]
     Active Substance: HERBALS\HONEY
     Indication: SINUS DISORDER
     Route: 055
     Dates: start: 20201201, end: 20210129

REACTIONS (2)
  - Immune system disorder [None]
  - Alopecia [None]

NARRATIVE: CASE EVENT DATE: 20201202
